FAERS Safety Report 17016589 (Version 4)
Quarter: 2019Q4

REPORT INFORMATION
  Report Type: Spontaneous
  Country: US (occurrence: US)
  Receive Date: 20191111
  Receipt Date: 20191119
  Transmission Date: 20200122
  Serious: No
  Sender: FDA-Public Use
  Company Number: US-PFIZER INC-2019485703

PATIENT
  Age: 62 Year
  Sex: Female
  Weight: 63.39 kg

DRUGS (1)
  1. IBRANCE [Suspect]
     Active Substance: PALBOCICLIB
     Indication: BREAST CANCER FEMALE
     Dosage: 75 MG, CYCLIC [DAILY 1-21 AND OFF 7 DAYS]
     Route: 048
     Dates: start: 20160925

REACTIONS (1)
  - Blood count abnormal [Unknown]
